FAERS Safety Report 21409388 (Version 1)
Quarter: 2022Q4

REPORT INFORMATION
  Report Type: Spontaneous
  Country: US (occurrence: US)
  Receive Date: 20221004
  Receipt Date: 20221004
  Transmission Date: 20230112
  Serious: Yes (Other)
  Sender: FDA-Public Use
  Company Number: US-BRISTOL-MYERS SQUIBB COMPANY-2022-111547

PATIENT
  Age: 76 Year
  Sex: Male
  Weight: 108.86 kg

DRUGS (12)
  1. ELIQUIS [Interacting]
     Active Substance: APIXABAN
     Indication: Pulmonary embolism
     Dosage: 10 MG, 2X/DAY
     Route: 048
     Dates: start: 20211225, end: 20220103
  2. ELIQUIS [Interacting]
     Active Substance: APIXABAN
     Dosage: 5 MG, 2X/DAY
     Route: 048
     Dates: start: 20220104
  3. ELIQUIS [Interacting]
     Active Substance: APIXABAN
     Dosage: 2.5 MG, 2X/DAY
     Route: 048
     Dates: start: 2022
  4. ELIQUIS [Interacting]
     Active Substance: APIXABAN
     Dosage: 5 MG, 2X/DAY
     Route: 048
     Dates: start: 2022, end: 202207
  5. ELIQUIS [Interacting]
     Active Substance: APIXABAN
     Dosage: 2.5 MG, 2X/DAY
     Route: 048
     Dates: start: 202207
  6. PAXLOVID [Interacting]
     Active Substance: NIRMATRELVIR\RITONAVIR
     Indication: COVID-19
     Dosage: UNK UNK, 2X/DAY
     Route: 065
     Dates: start: 2022
  7. LISINOPRIL [Concomitant]
     Active Substance: LISINOPRIL
     Dosage: UNK
     Route: 065
  8. COVID-19 VACCINE [Concomitant]
     Dosage: X3 DOSES PRIOR TO GETTING COVID
     Route: 065
  9. METFORMIN [Concomitant]
     Active Substance: METFORMIN HYDROCHLORIDE
     Indication: Diabetes prophylaxis
     Dosage: UNK
     Route: 065
  10. ATORVASTATIN [Concomitant]
     Active Substance: ATORVASTATIN
     Indication: Coronary arterial stent insertion
     Dosage: 80 MG, DAILY
     Route: 065
  11. ATORVASTATIN [Concomitant]
     Active Substance: ATORVASTATIN
     Indication: Arterial disorder
  12. POTASSIUM [Concomitant]
     Active Substance: POTASSIUM
     Dosage: UNK
     Route: 065

REACTIONS (4)
  - Osteofibroma [Unknown]
  - COVID-19 [Recovered/Resolved]
  - Labelled drug-drug interaction medication error [Unknown]
  - Intentional product use issue [Unknown]

NARRATIVE: CASE EVENT DATE: 20211225
